FAERS Safety Report 9263190 (Version 1)
Quarter: 2013Q2

REPORT INFORMATION
  Report Type: Spontaneous
  Country: FR (occurrence: None)
  Receive Date: 20130426
  Receipt Date: 20130426
  Transmission Date: 20140414
  Serious: Yes (Life-Threatening, Hospitalization)
  Sender: FDA-Public Use
  Company Number: 2013CP000041

PATIENT
  Age: 13 Year
  Sex: Male

DRUGS (6)
  1. PERFALGAN [Suspect]
     Indication: ANALGESIC THERAPY
     Route: 042
     Dates: start: 20130124, end: 20130127
  2. CEFOTAXIME SODIUM (CEFOTAXIME SODIUM) [Suspect]
     Route: 042
     Dates: start: 20130124, end: 20130127
  3. PERINDOPRIL [Suspect]
     Route: 042
     Dates: start: 201004, end: 20130127
  4. PHLOROGLUCINOL [Suspect]
     Route: 048
     Dates: start: 20130124, end: 20130127
  5. GENTAMICIN SULFATE [Suspect]
  6. OMEPRAZOLE (OMEPRAZOLE) [Suspect]
     Indication: VOMITING

REACTIONS (24)
  - Hepatocellular injury [None]
  - Subileus [None]
  - Leukocytosis [None]
  - Inflammation [None]
  - Leukocyturia [None]
  - Enterococcus test positive [None]
  - Pathogen resistance [None]
  - Hyponatraemia [None]
  - Hypokalaemia [None]
  - Hypophosphataemia [None]
  - Calculus ureteric [None]
  - Heart rate increased [None]
  - Enterocolitis [None]
  - Septic shock [None]
  - Ejection fraction decreased [None]
  - Cardiac failure [None]
  - Hepatic failure [None]
  - Hypovolaemic shock [None]
  - Malnutrition [None]
  - Generalised oedema [None]
  - Hyperlactacidaemia [None]
  - Cardiogenic shock [None]
  - Toxicity to various agents [None]
  - Ischaemic hepatitis [None]
